FAERS Safety Report 8214220-1 (Version None)
Quarter: 2012Q1

REPORT INFORMATION
  Report Type: 
  Country: None (occurrence: None)
  Receive Date: 20120316
  Receipt Date: 20120312
  Transmission Date: 20120608
  Serious: Yes (Other)
  Sender: FDA-Public Use
  Company Number: FR-PFIZER INC-2012064676

PATIENT
  Age: 54 Year
  Sex: Female
  Weight: 72 kg

DRUGS (15)
  1. PROVAMES [Concomitant]
     Indication: BLOOD LUTEINISING HORMONE DECREASED
     Dosage: UNK
     Route: 048
     Dates: start: 20021201
  2. ATORVASTATIN [Concomitant]
     Indication: LIPID METABOLISM DISORDER
     Dosage: UNK
     Route: 048
     Dates: start: 20061001
  3. LEVOTHYROXINE SODIUM [Concomitant]
     Indication: PRIMARY HYPOTHYROIDISM
  4. PROGESTERONE [Concomitant]
     Indication: HYPOGONADISM FEMALE
  5. INDAPAMIDE [Concomitant]
     Indication: URINARY TRACT DISORDER
     Dosage: UNK
     Route: 048
     Dates: start: 20021201
  6. SOMATROPIN [Suspect]
     Indication: GROWTH HORMONE DEFICIENCY
     Dosage: 0.4 MG, 1X/DAY
     Dates: start: 20041103
  7. ESTREVA [Concomitant]
     Indication: HYPOGONADISM FEMALE
  8. PROVAMES [Concomitant]
     Indication: HYPOGONADISM FEMALE
  9. PROGESTERONE [Concomitant]
     Indication: BLOOD FOLLICLE STIMULATING HORMONE DECREASED
  10. LEVOTHYROXINE SODIUM [Concomitant]
     Indication: BLOOD THYROID STIMULATING HORMONE DECREASED
     Dosage: UNK
     Route: 048
     Dates: start: 20060407
  11. PROVAMES [Concomitant]
     Indication: BLOOD FOLLICLE STIMULATING HORMONE DECREASED
  12. ESTREVA [Concomitant]
     Indication: BLOOD LUTEINISING HORMONE DECREASED
     Dosage: UNK
     Route: 048
     Dates: start: 20071128
  13. ESTREVA [Concomitant]
     Indication: BLOOD FOLLICLE STIMULATING HORMONE DECREASED
  14. ACETAMINOPHEN [Concomitant]
     Indication: ARTHRALGIA
     Dosage: UNK
     Route: 048
     Dates: start: 20061109
  15. PROGESTERONE [Concomitant]
     Indication: BLOOD LUTEINISING HORMONE DECREASED
     Dosage: UNK
     Route: 048
     Dates: start: 20021201

REACTIONS (2)
  - PROLACTIN-PRODUCING PITUITARY TUMOUR [None]
  - CONDITION AGGRAVATED [None]
